FAERS Safety Report 18627734 (Version 1)
Quarter: 2020Q4

REPORT INFORMATION
  Report Type: Spontaneous
  Country: US (occurrence: US)
  Receive Date: 20201216
  Receipt Date: 20201216
  Transmission Date: 20210114
  Serious: No
  Sender: FDA-Public Use
  Company Number: None

PATIENT
  Sex: Female

DRUGS (20)
  1. HYDROXYCHLOR [Concomitant]
     Active Substance: HYDROXYCHLOROQUINE
  2. LEFLUNOMIDE. [Concomitant]
     Active Substance: LEFLUNOMIDE
  3. PREGABALIN. [Concomitant]
     Active Substance: PREGABALIN
  4. BENZONATATE. [Concomitant]
     Active Substance: BENZONATATE
  5. METHOCARBAM [Concomitant]
     Active Substance: METHOCARBAMOL
  6. OXYCODONE AND ACETAMINOPHEN [Concomitant]
     Active Substance: ACETAMINOPHEN\OXYCODONE HYDROCHLORIDE
  7. ONDANSETRON [Concomitant]
     Active Substance: ONDANSETRON
  8. OXYCODONE [Concomitant]
     Active Substance: OXYCODONE
  9. REPATHA [Suspect]
     Active Substance: EVOLOCUMAB
     Indication: HYPERLIPIDAEMIA
     Dosage: ?          OTHER FREQUENCY:Q14D;?
     Route: 058
     Dates: start: 20201023
  10. METFORMIN [Concomitant]
     Active Substance: METFORMIN HYDROCHLORIDE
  11. PANTOPRAZOLE [Concomitant]
     Active Substance: PANTOPRAZOLE
  12. DEXAMETHASON [Concomitant]
     Active Substance: DEXAMETHASONE
  13. METHOTREXATE. [Concomitant]
     Active Substance: METHOTREXATE
  14. METOPROL TAR [Concomitant]
  15. PREDNISONE. [Concomitant]
     Active Substance: PREDNISONE
  16. TIZANIDINE. [Concomitant]
     Active Substance: TIZANIDINE
  17. ALBUTEROL AER [Concomitant]
     Active Substance: ALBUTEROL
  18. FOLIC ACID. [Concomitant]
     Active Substance: FOLIC ACID
  19. HYDROCHLOROT [Concomitant]
     Active Substance: HYDROCHLOROTHIAZIDE
  20. CLOTRIMAZOLE. [Concomitant]
     Active Substance: CLOTRIMAZOLE

REACTIONS (2)
  - Pneumonia [None]
  - COVID-19 [None]
